FAERS Safety Report 7494439-8 (Version None)
Quarter: 2011Q2

REPORT INFORMATION
  Report Type: 
  Country: None (occurrence: None)
  Receive Date: 20110520
  Receipt Date: 20110509
  Transmission Date: 20111010
  Serious: Yes (Hospitalization)
  Sender: FDA-Public Use
  Company Number: DE-ROCHE-774098

PATIENT
  Sex: Female
  Weight: 75 kg

DRUGS (2)
  1. CAPECITABINE [Suspect]
     Indication: RECTAL CANCER
     Dosage: LAST DOSE PRIOR TO SAE:26 APRIL 2011. SCHEDULE:825MG/M2 BID.D1-33 NO WEEKENDS AND OPTIONAL BOOST
     Route: 048
     Dates: start: 20110321
  2. OXALIPLATIN [Suspect]
     Indication: RECTAL CANCER
     Dosage: LAST DOSE PRIOR TO SAE:21 APRIL 2011.SCHEDULE:50MG/M2 IV ON D1,8,15,22 AND 29
     Route: 042
     Dates: start: 20110322

REACTIONS (6)
  - DIARRHOEA [None]
  - DEHYDRATION [None]
  - VOMITING [None]
  - STAPHYLOCOCCAL INFECTION [None]
  - ABSCESS INTESTINAL [None]
  - ABDOMINAL WALL ABSCESS [None]
